FAERS Safety Report 9231408 (Version 1)
Quarter: 2013Q2

REPORT INFORMATION
  Report Type: Spontaneous
  Country: US (occurrence: US)
  Receive Date: 20130415
  Receipt Date: 20130415
  Transmission Date: 20140414
  Serious: No
  Sender: FDA-Public Use
  Company Number: US-009507513-1304USA006280

PATIENT
  Age: 19 Year
  Sex: Female
  Weight: 55.33 kg

DRUGS (5)
  1. NUVARING [Suspect]
     Indication: CONTRACEPTION
     Dosage: UNK
     Route: 067
     Dates: end: 2013
  2. PROTONIX [Concomitant]
     Dosage: UNK
  3. ADVAIR [Concomitant]
     Dosage: UNK
  4. ALBUTEROL [Concomitant]
     Dosage: UNK
  5. ZYRTEC [Concomitant]
     Dosage: UNK

REACTIONS (1)
  - Unintended pregnancy [Unknown]
